FAERS Safety Report 8960832 (Version 1)
Quarter: 2012Q4

REPORT INFORMATION
  Report Type: Spontaneous
  Country: US (occurrence: None)
  Receive Date: 20121128
  Receipt Date: 20121128
  Transmission Date: 20130627
  Serious: Yes (Hospitalization)
  Sender: FDA-Public Use
  Company Number: 001409724A

PATIENT
  Age: 66 Year
  Sex: Female

DRUGS (1)
  1. OCTINOXATE, OCTISALATE, OXYBENZONE [Suspect]
     Dosage: dermal
     Dates: start: 20121015

REACTIONS (4)
  - Swelling face [None]
  - Nasal congestion [None]
  - Eye swelling [None]
  - Cellulitis [None]
